FAERS Safety Report 7720091-X (Version None)
Quarter: 2011Q3

REPORT INFORMATION
  Report Type: 
  Country: None (occurrence: None)
  Receive Date: 20110824
  Receipt Date: 20110815
  Transmission Date: 20111222
  Serious: Yes (Life-Threatening, Hospitalization)
  Sender: FDA-Public Use
  Company Number: DE-005747

PATIENT
  Sex: Male
  Weight: 82.6 kg

DRUGS (2)
  1. FIRMAGON [Suspect]
     Indication: PROSTATE CANCER METASTATIC
     Dosage: (80 MG 1X/MONTH SUBCUTANEOUS)
     Route: 058
     Dates: start: 20091201
  2. ZOMETA [Suspect]
     Indication: METASTASIS
     Dosage: (INTRAVENOUS (NOT OTHERWISE SPECIFIED))
     Route: 042
     Dates: start: 20100204

REACTIONS (9)
  - PRINZMETAL ANGINA [None]
  - OXYGEN SATURATION DECREASED [None]
  - SLEEP APNOEA SYNDROME [None]
  - SINUS TACHYCARDIA [None]
  - ACUTE CORONARY SYNDROME [None]
  - VENTRICULAR EXTRASYSTOLES [None]
  - MYOCARDIAL ISCHAEMIA [None]
  - ANAPHYLACTIC REACTION [None]
  - MYOCARDIAL INFARCTION [None]
